FAERS Safety Report 7067760-5 (Version None)
Quarter: 2010Q4

REPORT INFORMATION
  Report Type: 
  Country: None (occurrence: None)
  Receive Date: 20101028
  Receipt Date: 20091110
  Transmission Date: 20110411
  Serious: Yes (Other)
  Sender: FDA-Public Use
  Company Number: A0816298A

PATIENT
  Age: 83 Year
  Sex: Female

DRUGS (3)
  1. SEREVENT [Suspect]
     Indication: ASTHMA
     Route: 055
  2. PULMICORT [Concomitant]
  3. VERAPAMIL [Concomitant]

REACTIONS (1)
  - ASTHMA [None]
